FAERS Safety Report 5625511-2 (Version None)
Quarter: 2008Q1

REPORT INFORMATION
  Report Type: 
  Country: None (occurrence: None)
  Receive Date: 20080211
  Receipt Date: 20080211
  Transmission Date: 20080703
  Serious: Yes (Other)
  Sender: FDA-Public Use
  Company Number: None

PATIENT
  Age: 23 Year
  Sex: Male
  Weight: 70.6 kg

DRUGS (10)
  1. NEXIUM [Suspect]
     Indication: PROPHYLAXIS
     Dosage: 40MG ONCE DAILY IV
     Route: 042
     Dates: start: 20080101, end: 20080103
  2. NEXIUM [Suspect]
     Indication: STRESS ULCER
     Dosage: 40MG ONCE DAILY IV
     Route: 042
     Dates: start: 20080101, end: 20080103
  3. REGULAR INSULIN [Concomitant]
  4. SENNA SYRUP [Concomitant]
  5. DOPAMINE DRIP [Concomitant]
  6. MAGNESIUM SULFATE [Concomitant]
  7. PROPOFOL [Concomitant]
  8. ENOXAPARIN SODIUM [Concomitant]
  9. DOCUSATE [Concomitant]
  10. FENTANYL [Concomitant]

REACTIONS (1)
  - LATEX ALLERGY [None]
